FAERS Safety Report 5210521-X (Version None)
Quarter: 2007Q1

REPORT INFORMATION
  Report Type: 
  Country: None (occurrence: None)
  Receive Date: 20070117
  Receipt Date: 20070108
  Transmission Date: 20070707
  Serious: Yes (Other)
  Sender: FDA-Public Use
  Company Number: PHEH2007US00704

PATIENT
  Age: 79 Year
  Sex: Female

DRUGS (2)
  1. LOTREL [Suspect]
     Indication: BLOOD PRESSURE INCREASED
     Route: 048
     Dates: start: 20070101, end: 20070101
  2. ANTI-PARKINSON AGENTS [Concomitant]
     Indication: PARKINSON'S DISEASE

REACTIONS (2)
  - EYE IRRITATION [None]
  - URINARY RETENTION [None]
